FAERS Safety Report 7729604-5 (Version None)
Quarter: 2011Q3

REPORT INFORMATION
  Report Type: 
  Country: None (occurrence: None)
  Receive Date: 20110906
  Receipt Date: 20110826
  Transmission Date: 20111222
  Serious: Yes (Hospitalization)
  Sender: FDA-Public Use
  Company Number: US-BAYER-2010-009030

PATIENT
  Age: 46 Year
  Sex: Female
  Weight: 65.76 kg

DRUGS (7)
  1. YAZ [Suspect]
     Indication: MENSTRUAL CYCLE MANAGEMENT
     Dosage: UNK
     Dates: start: 20080807, end: 20081119
  2. ACIPHEX [Concomitant]
     Dosage: UNK
     Dates: start: 20030101
  3. ADVIL/TYLENOL [Concomitant]
     Dosage: UNK UNK, PRN
     Dates: start: 20081001, end: 20081101
  4. PREVACID [Concomitant]
     Dosage: UNK
     Dates: start: 20030101
  5. ADVIL/TYLENOL [Concomitant]
     Dosage: UNK UNK, PRN
     Dates: start: 20081001, end: 20081101
  6. PREVACID [Concomitant]
     Dosage: UNK
     Dates: start: 20081017
  7. ADVIL/TYLENOL [Concomitant]
     Dosage: UNK UNK, PRN
     Dates: start: 20081001, end: 20081101

REACTIONS (2)
  - DEEP VEIN THROMBOSIS [None]
  - PAIN [None]
